FAERS Safety Report 11888168 (Version 2)
Quarter: 2016Q2

REPORT INFORMATION
  Report Type: Spontaneous
  Country: US (occurrence: US)
  Receive Date: 20160105
  Receipt Date: 20160617
  Transmission Date: 20160815
  Serious: Yes (Life-Threatening, Other)
  Sender: FDA-Public Use
  Company Number: US-SUN PHARMACEUTICAL INDUSTRIES LTD-2015US-108964

PATIENT
  Age: 46 Year
  Sex: Female

DRUGS (2)
  1. METHYLPREDNISOLONE. [Concomitant]
     Active Substance: METHYLPREDNISOLONE
     Indication: RESPIRATORY FAILURE
     Route: 042
  2. ADRENALINE [Suspect]
     Active Substance: EPINEPHRINE
     Indication: DYSPNOEA
     Dosage: SEVERAL DOSES
     Route: 058

REACTIONS (3)
  - Sinus tachycardia [Unknown]
  - Systolic hypertension [Unknown]
  - Thyrotoxic crisis [Recovering/Resolving]
